FAERS Safety Report 9453949 (Version 2)
Quarter: 2013Q4

REPORT INFORMATION
  Report Type: Spontaneous
  Country: FR (occurrence: FR)
  Receive Date: 20130812
  Receipt Date: 20131014
  Transmission Date: 20140711
  Serious: Yes (Death, Life-Threatening)
  Sender: FDA-Public Use
  Company Number: FR-ASTRAZENECA-2013SE62504

PATIENT
  Age: 27 Year
  Sex: Male

DRUGS (8)
  1. XEROQUEL [Suspect]
     Indication: SCHIZOPHRENIA
     Route: 048
     Dates: start: 20130507, end: 20130519
  2. TERCIAN [Suspect]
     Route: 048
     Dates: start: 20120726, end: 20130519
  3. LEPTICUR [Suspect]
     Route: 048
     Dates: start: 20120813, end: 20130519
  4. CLOPIXOL [Suspect]
     Route: 048
     Dates: start: 20120522, end: 20130519
  5. OLANZAPINE MYLAN [Concomitant]
  6. UVEDOSE [Concomitant]
  7. DEPAMIDE [Concomitant]
  8. VALIUM [Concomitant]

REACTIONS (5)
  - Intestinal obstruction [Fatal]
  - Faecal vomiting [Not Recovered/Not Resolved]
  - Multi-organ failure [Fatal]
  - Septic shock [Unknown]
  - Pneumonia aspiration [Unknown]
